FAERS Safety Report 7678646-7 (Version None)
Quarter: 2011Q3

REPORT INFORMATION
  Report Type: 
  Country: None (occurrence: None)
  Receive Date: 20110811
  Receipt Date: 20110727
  Transmission Date: 20111222
  Serious: Yes (Hospitalization)
  Sender: FDA-Public Use
  Company Number: TR-BAYER-2011-065086

PATIENT
  Age: 76 Year
  Sex: Male

DRUGS (5)
  1. ACETYLSALICYLIC ACID SRT [Suspect]
     Indication: ESSENTIAL THROMBOCYTHAEMIA
     Dosage: UNK
     Route: 048
  2. AMLODIPINE [Concomitant]
     Indication: HYPERTENSION
     Dosage: SWITCHED FROM ENELAPRIL
     Route: 048
  3. ENALAPRIL MALEATE [Concomitant]
     Indication: HYPERTENSION
     Dosage: UNK
  4. FOLIC ACID [Concomitant]
     Indication: ESSENTIAL THROMBOCYTHAEMIA
     Dosage: UNK
  5. ACETYLSALICYLIC ACID SRT [Suspect]
     Dosage: UNK
     Route: 048

REACTIONS (1)
  - PEMPHIGOID [None]
